FAERS Safety Report 10924822 (Version 2)
Quarter: 2015Q2

REPORT INFORMATION
  Report Type: Spontaneous
  Country: US (occurrence: US)
  Receive Date: 20150318
  Receipt Date: 20150524
  Transmission Date: 20150821
  Serious: No
  Sender: FDA-Public Use
  Company Number: US-JNJFOC-20130112240

PATIENT
  Age: 48 Year
  Sex: Male
  Weight: 108.86 kg

DRUGS (4)
  1. NIZORAL A-D [Suspect]
     Active Substance: KETOCONAZOLE
     Indication: DANDRUFF
     Dosage: FROM 7 YEARS, AS NEEDED
     Route: 061
  2. NIZORAL A-D [Suspect]
     Active Substance: KETOCONAZOLE
     Indication: PRURITUS
     Dosage: AS NEEDED
     Route: 061
     Dates: start: 20130115
  3. NIZORAL A-D [Suspect]
     Active Substance: KETOCONAZOLE
     Indication: PRURITUS
     Dosage: FROM 7 YEARS, AS NEEDED
     Route: 061
  4. NIZORAL A-D [Suspect]
     Active Substance: KETOCONAZOLE
     Indication: DANDRUFF
     Dosage: AS NEEDED
     Route: 061
     Dates: start: 20130115

REACTIONS (1)
  - Drug effect decreased [Unknown]
